FAERS Safety Report 23261077 (Version 2)
Quarter: 2024Q1

REPORT INFORMATION
  Report Type: Report from Study
  Country: IN (occurrence: IN)
  Receive Date: 20231205
  Receipt Date: 20240127
  Transmission Date: 20240410
  Serious: No
  Sender: FDA-Public Use
  Company Number: IN-002147023-NVSC2023IN255352

PATIENT
  Sex: Male

DRUGS (1)
  1. TASIGNA [Suspect]
     Active Substance: NILOTINIB
     Indication: Chronic myeloid leukaemia
     Dosage: 300 MG, BID
     Route: 048
     Dates: start: 20230710

REACTIONS (5)
  - Laboratory test abnormal [Unknown]
  - Haemoglobin abnormal [Unknown]
  - Blood immunoglobulin E abnormal [Unknown]
  - Cytogenetic analysis abnormal [Unknown]
  - Rash maculo-papular [Unknown]
